FAERS Safety Report 15207969 (Version 1)
Quarter: 2018Q3

REPORT INFORMATION
  Report Type: Report from Study
  Country: DE (occurrence: DE)
  Receive Date: 20180727
  Receipt Date: 20180727
  Transmission Date: 20181010
  Serious: Yes (Other)
  Sender: FDA-Public Use
  Company Number: DE-JNJFOC-20180733420

PATIENT
  Age: 83 Year
  Sex: Female
  Weight: 79 kg

DRUGS (1)
  1. XARELTO [Suspect]
     Active Substance: RIVAROXABAN
     Indication: ATRIAL FIBRILLATION
     Route: 048
     Dates: start: 20121219

REACTIONS (2)
  - Retinal haemorrhage [Unknown]
  - Retinal ischaemia [Unknown]

NARRATIVE: CASE EVENT DATE: 20180129
